FAERS Safety Report 18392889 (Version 1)
Quarter: 2020Q4

REPORT INFORMATION
  Report Type: Spontaneous
  Country: US (occurrence: US)
  Receive Date: 20201016
  Receipt Date: 20201016
  Transmission Date: 20210114
  Serious: Yes (Other)
  Sender: FDA-Public Use
  Company Number: None

PATIENT
  Age: 71 Year
  Sex: Female

DRUGS (1)
  1. REPATHA [Suspect]
     Active Substance: EVOLOCUMAB
     Indication: HYPERLIPIDAEMIA
     Dosage: ?          OTHER FREQUENCY:EVERY 2 WEEKS;?
     Route: 058
     Dates: start: 20200909

REACTIONS (14)
  - Ear congestion [None]
  - Dizziness [None]
  - Nasal congestion [None]
  - Fatigue [None]
  - Sneezing [None]
  - Nervousness [None]
  - Nausea [None]
  - Vision blurred [None]
  - Rhinorrhoea [None]
  - Back pain [None]
  - Influenza like illness [None]
  - Asthenia [None]
  - Headache [None]
  - Pain [None]

NARRATIVE: CASE EVENT DATE: 20201010
